FAERS Safety Report 16564925 (Version 3)
Quarter: 2019Q4

REPORT INFORMATION
  Report Type: Spontaneous
  Country: BR (occurrence: BR)
  Receive Date: 20190712
  Receipt Date: 20191016
  Transmission Date: 20200122
  Serious: Yes (Disabling)
  Sender: FDA-Public Use
  Company Number: BR-009507513-1907BRA003996

PATIENT
  Age: 77 Year
  Sex: Female
  Weight: 88 kg

DRUGS (2)
  1. INVANZ [Suspect]
     Active Substance: ERTAPENEM SODIUM
     Indication: URINARY TRACT INFECTION BACTERIAL
     Dosage: 1 AMPOULE PER DAY
     Route: 042
     Dates: end: 20190704
  2. INVANZ [Suspect]
     Active Substance: ERTAPENEM SODIUM
     Dosage: 1 GRAM, QD
     Route: 042
     Dates: start: 20190719, end: 20190725

REACTIONS (5)
  - Fall [Recovered/Resolved]
  - Fall [Recovered/Resolved]
  - Movement disorder [Recovered/Resolved]
  - Muscular weakness [Recovered/Resolved]
  - Gait disturbance [Recovered/Resolved]

NARRATIVE: CASE EVENT DATE: 20190723
